FAERS Safety Report 8173206-6 (Version None)
Quarter: 2012Q1

REPORT INFORMATION
  Report Type: 
  Country: None (occurrence: None)
  Receive Date: 20120229
  Receipt Date: 20110822
  Transmission Date: 20120608
  Serious: No
  Sender: FDA-Public Use
  Company Number: US-GLAXOSMITHKLINE-A0942571A

PATIENT

DRUGS (1)
  1. SUMATRIPTAN [Suspect]
     Indication: HEADACHE
     Route: 042

REACTIONS (3)
  - INJECTION SITE PAIN [None]
  - DRUG INEFFECTIVE [None]
  - PRODUCT QUALITY ISSUE [None]
